FAERS Safety Report 21084000 (Version 1)
Quarter: 2022Q3

REPORT INFORMATION
  Report Type: Spontaneous
  Country: US (occurrence: US)
  Receive Date: 20220714
  Receipt Date: 20220714
  Transmission Date: 20221027
  Serious: No
  Sender: FDA-Public Use
  Company Number: US-JAZZ-2022-US-013232

PATIENT
  Sex: Male
  Weight: 49.3 kg

DRUGS (1)
  1. EPIDIOLEX [Suspect]
     Active Substance: CANNABIDIOL
     Indication: Product used for unknown indication
     Dosage: 450 MILLIGRAM, BID
     Route: 048
     Dates: start: 20190322

REACTIONS (3)
  - Anxiety [Unknown]
  - Restlessness [Unknown]
  - Scratch [Unknown]
